FAERS Safety Report 7878595-5 (Version None)
Quarter: 2011Q4

REPORT INFORMATION
  Report Type: 
  Country: None (occurrence: None)
  Receive Date: 20111101
  Receipt Date: 20111101
  Transmission Date: 20120403
  Serious: Yes (Other)
  Sender: FDA-Public Use
  Company Number: None

PATIENT
  Age: 26 Year
  Sex: Female
  Weight: 70.306 kg

DRUGS (2)
  1. TOPIRAMATE [Suspect]
     Indication: MIGRAINE
     Dosage: 100
     Route: 048
     Dates: start: 20080505, end: 20110831
  2. TOPIRAMATE [Concomitant]
     Dosage: 50
     Route: 048
     Dates: start: 20080505, end: 20110706

REACTIONS (2)
  - RENAL TUBULAR ACIDOSIS [None]
  - WRONG TECHNIQUE IN DRUG USAGE PROCESS [None]
